FAERS Safety Report 16374884 (Version 1)
Quarter: 2019Q2

REPORT INFORMATION
  Report Type: Spontaneous
  Country: GB (occurrence: GB)
  Receive Date: 20190531
  Receipt Date: 20190531
  Transmission Date: 20190711
  Serious: Yes (Other)
  Sender: FDA-Public Use
  Company Number: GB-TEVA-2019-GB-1056401

PATIENT
  Age: 79 Year
  Sex: Female
  Weight: 61 kg

DRUGS (15)
  1. HYDROXYCHLOROQUINE SULFATE. [Concomitant]
     Active Substance: HYDROXYCHLOROQUINE SULFATE
     Dates: start: 20180725
  2. INCRUSE ELLIPTA [Concomitant]
     Active Substance: UMECLIDINIUM BROMIDE
     Dosage: 1 DOSAGE FORMS DAILY;
     Route: 055
     Dates: start: 20180220
  3. CASSIA [Concomitant]
     Dosage: 2 DOSAGE FORMS DAILY; AT NIGHT.
     Route: 065
     Dates: start: 20190130
  4. CALCIUM CARBONATE. [Concomitant]
     Active Substance: CALCIUM CARBONATE
     Dosage: 2 DOSAGE FORMS DAILY;
     Route: 065
     Dates: start: 20181016
  5. PREDNISOLONE. [Suspect]
     Active Substance: PREDNISOLONE
     Dosage: 5 MILLIGRAM DAILY; EVERY MORNING.
     Dates: start: 20180725
  6. OMEPRAZOLE. [Concomitant]
     Active Substance: OMEPRAZOLE
     Dosage: 1 DOSAGE FORMS DAILY; EVERY MORNING.
     Dates: start: 20180725
  7. MIRTAZAPINE. [Concomitant]
     Active Substance: MIRTAZAPINE
     Dosage: 1 DOSAGE FORMS DAILY; AT NIGHT.
     Route: 065
     Dates: start: 20190326, end: 20190423
  8. PARAFFIN, LIGHT LIQUID [Concomitant]
     Dosage: AS DIRECTED.
     Route: 065
     Dates: start: 20161010
  9. FUROSEMIDE. [Concomitant]
     Active Substance: FUROSEMIDE
     Dosage: 1 DOSAGE FORMS DAILY;
     Route: 065
     Dates: start: 20170929
  10. INDAPAMIDE. [Concomitant]
     Active Substance: INDAPAMIDE
     Dosage: 1 DOSAGE FORMS DAILY; EACH MORNING.
     Route: 065
     Dates: start: 20180314
  11. TIOTROPIUM [Concomitant]
     Active Substance: TIOTROPIUM
     Dosage: 1 DOSAGE FORMS DAILY;
     Route: 055
     Dates: start: 20151216
  12. FUCIDIN [Concomitant]
     Active Substance: FUSIDATE SODIUM
     Dosage: 2 DOSAGE FORMS DAILY; APPLY SPARINGLY.
     Route: 065
     Dates: start: 20190312, end: 20190319
  13. PARACETAMOL [Concomitant]
     Active Substance: ACETAMINOPHEN
     Dosage: 1 TO 2 UP TO FOUR TIMES DAILY.
     Dates: start: 20190326, end: 20190407
  14. FULTIUM-D3 [Concomitant]
     Active Substance: CHOLECALCIFEROL
     Dates: start: 20190416
  15. RISEDRONATE SODIUM. [Concomitant]
     Active Substance: RISEDRONATE SODIUM
     Dosage: 1 DOSAGE FORMS DAILY;
     Route: 065
     Dates: start: 20161010

REACTIONS (1)
  - Rash [Recovered/Resolved]
